FAERS Safety Report 9791491 (Version 10)
Quarter: 2014Q3

REPORT INFORMATION
  Report Type: Report from Study
  Country: CA (occurrence: CA)
  Receive Date: 20140101
  Receipt Date: 20140801
  Transmission Date: 20150326
  Serious: Yes (Hospitalization, Other)
  Sender: FDA-Public Use
  Company Number: PHHY2012CA071281

PATIENT
  Age: 74 Year
  Sex: Male
  Weight: 62.13 kg

DRUGS (26)
  1. NOVOLIN GE [Concomitant]
     Dosage: 12 IU EACH MORNING AND 22 IU EACH NIGHT
  2. IMODIUM [Concomitant]
     Active Substance: LOPERAMIDE HYDROCHLORIDE
     Dosage: 8 DF, 2 TABLETS IN MORNING, 3 TABLETS AT NOON AND 3 TABLETS AT BED-TIME
     Route: 048
  3. NOVOLIN GE [Concomitant]
     Dosage: 22 IU, EVERY HS
  4. IMODIUM [Concomitant]
     Active Substance: LOPERAMIDE HYDROCHLORIDE
     Dosage: 8 DF, UNK
  5. NOVOLIN [Concomitant]
     Active Substance: INSULIN HUMAN
     Dosage: 16 U, DAILY
  6. NOVOLIN [Concomitant]
     Active Substance: INSULIN HUMAN
     Dosage: 16 U, UNK
     Dates: start: 20131216
  7. AMLODIPINE [Concomitant]
     Active Substance: AMLODIPINE BESYLATE
     Dosage: 5 MG, DAILY
  8. ASPIRIN. [Concomitant]
     Active Substance: ASPIRIN
     Dosage: 81 MG, UNK
  9. NOVOLIN [Concomitant]
     Active Substance: INSULIN HUMAN
     Dosage: 12 IU, EACH MORNING
  10. NOVOLIN [Concomitant]
     Active Substance: INSULIN HUMAN
     Dosage: 18 U, QD (EVERY MORNING)
     Dates: start: 20131111
  11. AFINITOR [Suspect]
     Active Substance: EVEROLIMUS
     Dosage: 5 MG, UNK
     Route: 048
     Dates: end: 20131208
  12. NOVOLIN [Concomitant]
     Active Substance: INSULIN HUMAN
     Dosage: 18 U, UNK
     Dates: start: 20131202
  13. NOVOLIN GE [Concomitant]
     Dosage: 20 IU EACH MORNING AND 10 IU EACH EVENING)
  14. NOVOLIN [Concomitant]
     Active Substance: INSULIN HUMAN
     Dosage: 16 U, QD (EVERY MORNING)
     Dates: start: 20131125
  15. LEVEMIR [Concomitant]
     Active Substance: INSULIN DETEMIR
     Dosage: 12 IU, BED TIME
  16. SANDOSTATIN LAR DEPOT [Suspect]
     Active Substance: OCTREOTIDE ACETATE
     Indication: PANCREATIC NEUROENDOCRINE TUMOUR METASTATIC
     Dosage: 20 MG, EVERY 4 WEEKS
     Route: 030
     Dates: start: 20120810
  17. SANDOSTATIN LAR DEPOT [Suspect]
     Active Substance: OCTREOTIDE ACETATE
     Dosage: 20 MG, ONCE A MONTH
     Route: 030
     Dates: end: 20140627
  18. NOVOLIN [Concomitant]
     Active Substance: INSULIN HUMAN
     Dosage: 12 U, EVERY MORNING
  19. NOVOLIN [Concomitant]
     Active Substance: INSULIN HUMAN
     Dosage: 16 U, EACH MORNING
     Dates: start: 20131010
  20. NOVOLIN [Concomitant]
     Active Substance: INSULIN HUMAN
     Dosage: 12 IU Q AM AND 22IU Q HS
  21. LEVEMIR [Concomitant]
     Active Substance: INSULIN DETEMIR
     Dosage: 5 IU, UNK
  22. AFINITOR [Suspect]
     Active Substance: EVEROLIMUS
     Indication: PANCREATIC NEUROENDOCRINE TUMOUR METASTATIC
     Dosage: 5 MG, TID
     Route: 048
     Dates: end: 201303
  23. NOVOLIN GE [Concomitant]
     Dosage: 8 IU, (20 EACH MORNING, 10 EACH EVENING)
  24. IMODIUM [Concomitant]
     Active Substance: LOPERAMIDE HYDROCHLORIDE
     Dosage: 6 DF
     Route: 048
  25. NOVOLIN [Concomitant]
     Active Substance: INSULIN HUMAN
     Dosage: 14 U, DAILY
  26. NOVOLIN [Concomitant]
     Active Substance: INSULIN HUMAN
     Dosage: 14 U, EVERY MORNING
     Dates: start: 20130903

REACTIONS (35)
  - Hepatic cancer [Unknown]
  - Lumbar vertebral fracture [Unknown]
  - Glaucoma [Unknown]
  - Arthritis [Unknown]
  - Contusion [Recovering/Resolving]
  - Blood pressure increased [Recovering/Resolving]
  - Asthenia [Not Recovered/Not Resolved]
  - Hepatic lesion [Unknown]
  - Osteoarthritis [Unknown]
  - Localised infection [Recovering/Resolving]
  - Back pain [Recovered/Resolved]
  - Productive cough [Unknown]
  - Night sweats [Recovered/Resolved]
  - Lip pain [Recovered/Resolved]
  - Blood glucose decreased [Unknown]
  - Blood pressure decreased [Unknown]
  - Confusional state [Unknown]
  - Nasopharyngitis [Recovering/Resolving]
  - Abdominal discomfort [Recovering/Resolving]
  - Dehydration [Unknown]
  - Malaise [Unknown]
  - Weight decreased [Not Recovered/Not Resolved]
  - Blood glucose fluctuation [Recovering/Resolving]
  - Vomiting [Unknown]
  - Arthralgia [Unknown]
  - Epistaxis [Not Recovered/Not Resolved]
  - Wheezing [Unknown]
  - Feeling abnormal [Unknown]
  - Cough [Unknown]
  - Heart rate increased [Unknown]
  - Breakthrough pain [Unknown]
  - Diarrhoea [Recovering/Resolving]
  - Eating disorder [Unknown]
  - Pollakiuria [Unknown]
  - Decreased appetite [Recovering/Resolving]

NARRATIVE: CASE EVENT DATE: 20120812
